FAERS Safety Report 9046966 (Version 1)
Quarter: 2013Q1

REPORT INFORMATION
  Report Type: Spontaneous
  Country: US (occurrence: None)
  Receive Date: 20130129
  Receipt Date: 20130129
  Transmission Date: 20140127
  Serious: Yes (Disabling)
  Sender: FDA-Public Use
  Company Number: None

PATIENT
  Age: 52 Year
  Sex: Male
  Weight: 102.06 kg

DRUGS (1)
  1. TOPIRAMATE ?100MG [Suspect]
     Indication: ANXIETY
     Dosage: 2X  PER DAY
     Dates: start: 20121101, end: 20121210

REACTIONS (4)
  - Hypoaesthesia [None]
  - Photopsia [None]
  - Psychotic disorder [None]
  - Mania [None]
